FAERS Safety Report 13371025 (Version 1)
Quarter: 2017Q1

REPORT INFORMATION
  Report Type: Spontaneous
  Country: FR (occurrence: FR)
  Receive Date: 20170324
  Receipt Date: 20170324
  Transmission Date: 20170429
  Serious: Yes (Hospitalization)
  Sender: FDA-Public Use
  Company Number: FR-JNJFOC-20170324707

PATIENT
  Age: 61 Year
  Sex: Female

DRUGS (6)
  1. ZENTIVA (PARACETAMOL\TRAMADOL) [Suspect]
     Active Substance: ACETAMINOPHEN\TRAMADOL
     Indication: BACK PAIN
     Route: 048
     Dates: start: 201701, end: 20170210
  2. BREXINE [Concomitant]
     Active Substance: PIROXICAM BETADEX
     Route: 065
     Dates: start: 201701, end: 201701
  3. ANTALNOX [Suspect]
     Active Substance: NAPROXEN SODIUM
     Indication: BACK PAIN
     Route: 048
     Dates: start: 20170124, end: 20170210
  4. OMEPRAZOLE. [Concomitant]
     Active Substance: OMEPRAZOLE
     Route: 048
     Dates: start: 20170109, end: 20170210
  5. THIOCOLCHICOSIDE [Concomitant]
     Active Substance: THIOCOLCHICOSIDE
     Route: 065
     Dates: start: 20170124, end: 20170210
  6. THIOCOLCHICOSIDE [Concomitant]
     Active Substance: THIOCOLCHICOSIDE
     Route: 065
     Dates: start: 20170124, end: 20170210

REACTIONS (3)
  - Condition aggravated [Recovered/Resolved]
  - Arthralgia [Recovered/Resolved]
  - Mechanical urticaria [Recovered/Resolved]

NARRATIVE: CASE EVENT DATE: 20170208
